FAERS Safety Report 10565763 (Version 1)
Quarter: 2014Q4

REPORT INFORMATION
  Report Type: Report from Study
  Country: BR (occurrence: BR)
  Receive Date: 20141105
  Receipt Date: 20141105
  Transmission Date: 20150529
  Serious: Yes (Other)
  Sender: FDA-Public Use
  Company Number: PHHY2014BR143741

PATIENT
  Age: 4 Year
  Sex: Male
  Weight: 16 kg

DRUGS (2)
  1. EXJADE [Suspect]
     Active Substance: DEFERASIROX
     Indication: SICKLE CELL ANAEMIA
     Dosage: 250 MG, UNK
     Route: 065
  2. EXJADE [Suspect]
     Active Substance: DEFERASIROX
     Dosage: 500 MG, QD
     Route: 065
     Dates: end: 201409

REACTIONS (7)
  - Arthralgia [Unknown]
  - Pain [Unknown]
  - Swelling [Unknown]
  - Serum ferritin increased [Recovering/Resolving]
  - Syncope [Unknown]
  - Blood disorder [Unknown]
  - Pyrexia [Unknown]
